FAERS Safety Report 21663496 (Version 1)
Quarter: 2022Q4

REPORT INFORMATION
  Report Type: Spontaneous
  Country: US (occurrence: None)
  Receive Date: 20221129
  Receipt Date: 20221129
  Transmission Date: 20230113
  Serious: Yes (Disabling)
  Sender: FDA-Public Use
  Company Number: None

PATIENT
  Age: 60 Year
  Sex: Female
  Weight: 77.4 kg

DRUGS (9)
  1. RECLAST [Suspect]
     Active Substance: ZOLEDRONIC ACID
     Indication: Osteoporosis
     Dosage: OTHER FREQUENCY : ONCE A YEAR INFUSI;?
     Route: 042
     Dates: start: 20220520, end: 20220520
  2. LASIX [Suspect]
     Active Substance: FUROSEMIDE
  3. TRULANCE [Concomitant]
     Active Substance: PLECANATIDE
  4. omeprasol [Concomitant]
  5. XANAX [Concomitant]
     Active Substance: ALPRAZOLAM
  6. VENLAFAXINE HYDROCHLORIDE [Concomitant]
     Active Substance: VENLAFAXINE HYDROCHLORIDE
  7. CALCIUM [Concomitant]
     Active Substance: CALCIUM
  8. ACETAMINOPHEN [Concomitant]
     Active Substance: ACETAMINOPHEN
  9. MINERALS\VITAMINS [Concomitant]
     Active Substance: MINERALS\VITAMINS

REACTIONS (9)
  - Dyspnoea [None]
  - Muscle spasms [None]
  - Infusion related reaction [None]
  - Hyperhidrosis [None]
  - Loss of personal independence in daily activities [None]
  - Pain [None]
  - Peripheral swelling [None]
  - Blister [None]
  - Feeling abnormal [None]

NARRATIVE: CASE EVENT DATE: 20220526
